FAERS Safety Report 22253418 (Version 1)
Quarter: 2023Q2

REPORT INFORMATION
  Report Type: Spontaneous
  Country: US (occurrence: None)
  Receive Date: 20230426
  Receipt Date: 20230426
  Transmission Date: 20230721
  Serious: Yes (Other)
  Sender: FDA-Public Use
  Company Number: 2023A091178

PATIENT

DRUGS (2)
  1. TAGRISSO [Suspect]
     Active Substance: OSIMERTINIB
     Indication: Lung carcinoma cell type unspecified stage IV
     Dosage: 80.0MG UNKNOWN
     Route: 048
  2. TAGRISSO [Suspect]
     Active Substance: OSIMERTINIB
     Indication: Lung carcinoma cell type unspecified stage IV
     Dosage: 40.0MG UNKNOWN
     Route: 048

REACTIONS (10)
  - Metastases to bone [Unknown]
  - Chest pain [Unknown]
  - Cough [Unknown]
  - Condition aggravated [Unknown]
  - Pyrexia [Unknown]
  - Intentional product misuse [Unknown]
  - Emphysema [Unknown]
  - Arteriosclerosis coronary artery [Unknown]
  - Speech disorder [Unknown]
  - Allergic cough [Unknown]
